FAERS Safety Report 6247378-4 (Version None)
Quarter: 2009Q2

REPORT INFORMATION
  Report Type: 
  Country: None (occurrence: None)
  Receive Date: 20090626
  Receipt Date: 20090619
  Transmission Date: 20091009
  Serious: Yes (Death)
  Sender: FDA-Public Use
  Company Number: B0580316A

PATIENT
  Sex: Female

DRUGS (9)
  1. ARIXTRA [Suspect]
     Indication: THROMBOSIS PROPHYLAXIS
     Dosage: 2.5MG PER DAY
     Route: 058
     Dates: start: 20090605, end: 20090616
  2. PLAVIX [Suspect]
     Indication: DRUG USE FOR UNKNOWN INDICATION
     Route: 048
  3. SERETIDE [Concomitant]
     Indication: CHRONIC OBSTRUCTIVE PULMONARY DISEASE
     Route: 065
  4. VENTOLIN [Concomitant]
     Indication: CHRONIC OBSTRUCTIVE PULMONARY DISEASE
     Route: 065
  5. SPIRIVA [Concomitant]
     Indication: CHRONIC OBSTRUCTIVE PULMONARY DISEASE
     Route: 065
  6. LESCOL [Concomitant]
     Route: 065
  7. DIFFU K [Concomitant]
     Indication: DRUG USE FOR UNKNOWN INDICATION
     Route: 065
  8. ISOPTIN [Concomitant]
     Route: 065
  9. ATACAND [Concomitant]
     Route: 065

REACTIONS (4)
  - AORTIC RUPTURE [None]
  - HAEMATEMESIS [None]
  - HAEMATOMA [None]
  - LOSS OF CONSCIOUSNESS [None]
